FAERS Safety Report 7312470-X (Version None)
Quarter: 2011Q1

REPORT INFORMATION
  Report Type: 
  Country: None (occurrence: None)
  Receive Date: 20110224
  Receipt Date: 20110215
  Transmission Date: 20110831
  Serious: Yes (Other)
  Sender: FDA-Public Use
  Company Number: US-ROCHE-735856

PATIENT
  Sex: Female
  Weight: 72.6 kg

DRUGS (3)
  1. ACCUTANE [Suspect]
     Indication: ACNE
     Route: 065
     Dates: start: 19821231
  2. ACCUTANE [Suspect]
     Route: 065
     Dates: start: 20010101, end: 20010101
  3. ACCUTANE [Suspect]
     Route: 065
     Dates: end: 20040101

REACTIONS (14)
  - RECTAL HAEMORRHAGE [None]
  - HYPERTENSION [None]
  - OBESITY [None]
  - CONJUNCTIVITIS [None]
  - GALLBLADDER DISORDER [None]
  - COLITIS ULCERATIVE [None]
  - ABDOMINAL PAIN [None]
  - DYSPHAGIA [None]
  - CROHN'S DISEASE [None]
  - DEPRESSION [None]
  - NAUSEA [None]
  - MENTAL DISORDER [None]
  - INFLAMMATORY BOWEL DISEASE [None]
  - CHRONIC OBSTRUCTIVE PULMONARY DISEASE [None]
